FAERS Safety Report 4729446-9 (Version None)
Quarter: 2005Q3

REPORT INFORMATION
  Report Type: 
  Country: None (occurrence: None)
  Receive Date: 20050728
  Receipt Date: 20050721
  Transmission Date: 20060218
  Serious: Yes (Hospitalization)
  Sender: FDA-Public Use
  Company Number: TAP2005Q01241

PATIENT
  Sex: Male

DRUGS (1)
  1. PREVACID [Suspect]
     Dosage: 30 MG, 1 IN 1 D, ORAL
     Route: 048

REACTIONS (3)
  - LEUKOCYTOCLASTIC VASCULITIS [None]
  - RASH GENERALISED [None]
  - SELF-MEDICATION [None]
